FAERS Safety Report 7959604-1 (Version None)
Quarter: 2011Q4

REPORT INFORMATION
  Report Type: 
  Country: None (occurrence: None)
  Receive Date: 20111206
  Receipt Date: 20111125
  Transmission Date: 20120403
  Serious: Yes (Other)
  Sender: FDA-Public Use
  Company Number: CA-JNJFOC-20111201333

PATIENT
  Sex: Female
  Weight: 58.97 kg

DRUGS (3)
  1. REMICADE [Suspect]
     Indication: CROHN'S DISEASE
     Dates: start: 20111021
  2. REMICADE [Suspect]
     Dates: start: 20111118
  3. REMICADE [Suspect]
     Dates: start: 20111007

REACTIONS (5)
  - HYPERTENSION [None]
  - SYNCOPE [None]
  - PALPITATIONS [None]
  - HEADACHE [None]
  - FATIGUE [None]
